FAERS Safety Report 8900390 (Version 1)
Quarter: 2012Q4

REPORT INFORMATION
  Report Type: 
  Country: US (occurrence: US)
  Receive Date: 20121109
  Receipt Date: 20121109
  Transmission Date: 20130627
  Serious: Yes (Death, Other)
  Sender: FDA-Public Use
  Company Number: US-PFIZER INC-2012276243

PATIENT
  Age: 53 Year
  Sex: Male
  Weight: 86.17 kg

DRUGS (12)
  1. ZOLOFT [Suspect]
     Dosage: UNK
     Dates: start: 20120920
  2. VILAZODONE [Suspect]
     Indication: DEPRESSION
     Dosage: 10 mg, daily
     Dates: start: 20120827, end: 20120902
  3. VILAZODONE [Suspect]
     Dosage: 20 mg, 1x/day
     Dates: start: 20120903, end: 20120909
  4. VILAZODONE [Suspect]
     Dosage: 40 mg, daily
     Dates: start: 20120910, end: 20120920
  5. PROMETHAZINE [Concomitant]
     Dosage: 25 mg, every 6 hours PRN
     Route: 048
  6. NEXIUM [Concomitant]
     Dosage: 40 mg, daily 1 in 1 D
     Route: 048
  7. HYDROCODONE/IBUPROFEN [Concomitant]
     Dosage: 7.5 mg-200 mg, every 4 hours
     Route: 048
  8. SIMVASTATIN [Concomitant]
     Dosage: 20 mg, QHS 1 in 1 D
     Route: 048
  9. MELOXICAM [Concomitant]
     Dosage: 15 mg, 1 in 1 D
     Route: 048
  10. ALPRAZOLAM [Concomitant]
     Dosage: 0.5 mg, 3x/day
     Route: 048
  11. OMEPRAZOLE [Concomitant]
     Dosage: 40 mg, 1 in 1 D
     Route: 048
  12. MAXALT [Concomitant]
     Dosage: 10 mg, 1x/day
     Route: 048

REACTIONS (3)
  - Completed suicide [Fatal]
  - Overdose [Fatal]
  - Mania [Unknown]
